FAERS Safety Report 11485809 (Version 3)
Quarter: 2015Q3

REPORT INFORMATION
  Report Type: Report from Study
  Country: IT (occurrence: IT)
  Receive Date: 20150910
  Receipt Date: 20150915
  Transmission Date: 20151125
  Serious: Yes (Death, Other)
  Sender: FDA-Public Use
  Company Number: PHHO2015IT013341

PATIENT
  Age: 55 Year
  Sex: Male
  Weight: 142 kg

DRUGS (6)
  1. RAMIPRIL/HYDROCHLOORTHIAZIDE [Concomitant]
     Active Substance: HYDROCHLOROTHIAZIDE\RAMIPRIL
     Indication: HYPERTENSION
  2. BISOPROLOL [Concomitant]
     Active Substance: BISOPROLOL
     Indication: CONGESTIVE CARDIOMYOPATHY
     Dosage: 1.25 MG, QD
     Route: 048
     Dates: start: 2008, end: 20150819
  3. AIN457 [Suspect]
     Active Substance: SECUKINUMAB
     Indication: PSORIASIS
     Dosage: 300 MG
     Route: 058
     Dates: start: 20150604, end: 20150728
  4. FUROSEMIDE. [Concomitant]
     Active Substance: FUROSEMIDE
     Indication: CONGESTIVE CARDIOMYOPATHY
     Dosage: 25 MG, BID
     Route: 048
     Dates: start: 2008, end: 20150819
  5. CANRENOATE POTASSIUM [Concomitant]
     Active Substance: CANRENOATE POTASSIUM
     Indication: CONGESTIVE CARDIOMYOPATHY
     Dosage: 300 MG, QD
     Route: 048
     Dates: start: 2008, end: 20150819
  6. RAMIPRIL/HYDROCHLOORTHIAZIDE [Concomitant]
     Active Substance: HYDROCHLOROTHIAZIDE\RAMIPRIL
     Indication: CONGESTIVE CARDIOMYOPATHY
     Dosage: 15 MG, (2.5 MG/12.5 MG) QD
     Route: 048
     Dates: start: 2008, end: 20150819

REACTIONS (8)
  - Leukopenia [Unknown]
  - Cardiac arrest [Fatal]
  - Pyrexia [Fatal]
  - Thrombocytopenia [Unknown]
  - Neutropenia [Unknown]
  - Asthenia [Fatal]
  - Oropharyngeal pain [Fatal]
  - Dyspnoea [Fatal]

NARRATIVE: CASE EVENT DATE: 20150630
